FAERS Safety Report 4344671-7 (Version None)
Quarter: 2004Q2

REPORT INFORMATION
  Report Type: 
  Country: None (occurrence: None)
  Receive Date: 20040419
  Receipt Date: 20040405
  Transmission Date: 20050107
  Serious: Yes (Hospitalization)
  Sender: FDA-Public Use
  Company Number: FR-JNJFOC-20040400992

PATIENT
  Age: 70 Year
  Sex: Male

DRUGS (6)
  1. RISPERDAL [Suspect]
     Indication: DELUSIONAL DISORDER, UNSPECIFIED TYPE
     Dosage: 5 MG, 1 IN 1 DAY, ORAL
     Route: 048
     Dates: start: 20040225, end: 20040317
  2. XATRAL (ALFUZOSIN) [Suspect]
     Indication: BENIGN NEOPLASM OF PROSTATE
     Dosage: 2.5 MG, 1 IN 1 DAY, ORAL
     Route: 048
     Dates: end: 20040314
  3. PARKINANE LP (TRIHEXYPHENIDYL HYDROCHLORIDE) [Suspect]
     Indication: ADVERSE EVENT
     Dosage: 5 MG, 1 IN 1 DAY, ORAL
     Route: 048
     Dates: end: 20040317
  4. LEXOMIL (BROMAZEPAM) [Concomitant]
  5. STILNOX (ZOLPIDEM) [Concomitant]
  6. PAROXETINE HCL [Concomitant]

REACTIONS (11)
  - BLOOD PRESSURE DECREASED [None]
  - DRUG INTERACTION [None]
  - DYSSTASIA [None]
  - HYPERHIDROSIS [None]
  - LOSS OF CONSCIOUSNESS [None]
  - PALLOR [None]
  - RHABDOMYOLYSIS [None]
  - SYNCOPE [None]
  - TREMOR [None]
  - VERTIGO [None]
  - VISION BLURRED [None]
